FAERS Safety Report 12829128 (Version 2)
Quarter: 2017Q3

REPORT INFORMATION
  Report Type: Spontaneous
  Country: US (occurrence: US)
  Receive Date: 20161007
  Receipt Date: 20170928
  Transmission Date: 20171127
  Serious: Yes (Other)
  Sender: FDA-Public Use
  Company Number: US-SA-2016SA000768

PATIENT
  Age: 41 Year
  Sex: Female

DRUGS (29)
  1. DIAZEPAM. [Concomitant]
     Active Substance: DIAZEPAM
  2. ASA [Concomitant]
     Active Substance: ASPIRIN
  3. AUBAGIO [Suspect]
     Active Substance: TERIFLUNOMIDE
     Indication: MULTIPLE SCLEROSIS
     Dosage: STRENGTH- 7 MG
     Route: 048
  4. HYDROCODONE BITARTRATE AND ACETAMINOPHEN [Concomitant]
     Active Substance: ACETAMINOPHEN\HYDROCODONE BITARTRATE
     Dosage: DOSE: 10-325 MG
  5. ESCITALOPRAM [Concomitant]
     Active Substance: ESCITALOPRAM OXALATE
  6. ZOLPIDEM [Concomitant]
     Active Substance: ZOLPIDEM\ZOLPIDEM TARTRATE
  7. PROAIR HFA [Concomitant]
     Active Substance: ALBUTEROL SULFATE
  8. AZITHROMYCIN ANHYDROUS. [Concomitant]
     Active Substance: AZITHROMYCIN ANHYDROUS
  9. ASPIRIN. [Concomitant]
     Active Substance: ASPIRIN
  10. ADVAIR DISKUS [Concomitant]
     Active Substance: FLUTICASONE PROPIONATE\SALMETEROL XINAFOATE
     Dosage: DOSE: 250/50 MG
  11. AUBAGIO [Suspect]
     Active Substance: TERIFLUNOMIDE
     Indication: MULTIPLE SCLEROSIS
     Dosage: STRENGTH- 7 MG
     Route: 048
     Dates: start: 20150723
  12. TRAZODONE [Concomitant]
     Active Substance: TRAZODONE HYDROCHLORIDE
     Indication: SLEEP DISORDER
  13. METHOCARBAMOL. [Concomitant]
     Active Substance: METHOCARBAMOL
  14. CLARITIN [Concomitant]
     Active Substance: LORATADINE
  15. AUBAGIO [Suspect]
     Active Substance: TERIFLUNOMIDE
     Indication: MULTIPLE SCLEROSIS
     Dosage: STRENGTH- 7 MG
     Route: 048
     Dates: start: 20150723
  16. HYDROXYZ PAM [Concomitant]
     Active Substance: HYDROXYZINE PAMOATE
  17. LEXAPRO [Concomitant]
     Active Substance: ESCITALOPRAM OXALATE
  18. AMBIEN [Concomitant]
     Active Substance: ZOLPIDEM TARTRATE
     Indication: SLEEP DISORDER
  19. METHYLPRED [Concomitant]
     Active Substance: METHYLPREDNISOLONE
  20. AMOXICILLIN. [Concomitant]
     Active Substance: AMOXICILLIN
  21. ATORVASTATIN [Concomitant]
     Active Substance: ATORVASTATIN
  22. REBIF [Concomitant]
     Active Substance: INTERFERON BETA-1A
  23. GABAPENTIN. [Concomitant]
     Active Substance: GABAPENTIN
  24. MODAFINIL. [Concomitant]
     Active Substance: MODAFINIL
  25. TEMAZEPAM. [Concomitant]
     Active Substance: TEMAZEPAM
  26. AUBAGIO [Suspect]
     Active Substance: TERIFLUNOMIDE
     Indication: MULTIPLE SCLEROSIS
     Dosage: STRENGTH- 7 MG
     Route: 048
     Dates: start: 20150723
  27. AUBAGIO [Suspect]
     Active Substance: TERIFLUNOMIDE
     Indication: MULTIPLE SCLEROSIS
     Dosage: STRENGTH- 7 MG
     Route: 048
     Dates: start: 20150521
  28. LIPITOR [Concomitant]
     Active Substance: ATORVASTATIN CALCIUM
  29. BACLOFEN. [Concomitant]
     Active Substance: BACLOFEN

REACTIONS (15)
  - Muscle spasms [Unknown]
  - Alopecia [Not Recovered/Not Resolved]
  - Poor quality sleep [Not Recovered/Not Resolved]
  - Musculoskeletal stiffness [Unknown]
  - Condition aggravated [Not Recovered/Not Resolved]
  - Fall [Not Recovered/Not Resolved]
  - Weight decreased [Recovering/Resolving]
  - Fatigue [Not Recovered/Not Resolved]
  - Hypoaesthesia [Unknown]
  - Anxiety [Not Recovered/Not Resolved]
  - Tremor [Unknown]
  - Product use issue [Unknown]
  - Multiple sclerosis relapse [Unknown]
  - Fatigue [Unknown]
  - Headache [Unknown]

NARRATIVE: CASE EVENT DATE: 2015
